FAERS Safety Report 9666499 (Version 1)
Quarter: 2013Q4

REPORT INFORMATION
  Report Type: Spontaneous
  Country: US (occurrence: US)
  Receive Date: 20131104
  Receipt Date: 20131104
  Transmission Date: 20140711
  Serious: No
  Sender: FDA-Public Use
  Company Number: US-BIOGENIDEC-2013BI086320

PATIENT
  Age: 56 Year
  Sex: Female

DRUGS (2)
  1. TECFIDERA [Suspect]
     Indication: MULTIPLE SCLEROSIS
     Dates: start: 201308
  2. TECFIDERA [Suspect]
     Indication: MULTIPLE SCLEROSIS
     Dates: start: 201308

REACTIONS (7)
  - Heart rate increased [Unknown]
  - Diplopia [Unknown]
  - Vision blurred [Unknown]
  - Discomfort [Unknown]
  - Urine flow decreased [Unknown]
  - Urine output decreased [Unknown]
  - Micturition urgency [Unknown]
